FAERS Safety Report 13489197 (Version 1)
Quarter: 2017Q2

REPORT INFORMATION
  Report Type: Spontaneous
  Country: None (occurrence: US)
  Receive Date: 20170426
  Receipt Date: 20170426
  Transmission Date: 20170830
  Serious: Yes (Other)
  Sender: FDA-Public Use
  Company Number: None

PATIENT
  Age: 60 Year
  Sex: Female
  Weight: 51.3 kg

DRUGS (1)
  1. SIMVASTATIN 10MG [Suspect]
     Active Substance: SIMVASTATIN

REACTIONS (1)
  - Myalgia [None]

NARRATIVE: CASE EVENT DATE: 20121106
